FAERS Safety Report 25766848 (Version 1)
Quarter: 2025Q3

REPORT INFORMATION
  Report Type: Spontaneous
  Country: US (occurrence: None)
  Receive Date: 20250903
  Receipt Date: 20250903
  Transmission Date: 20251021
  Serious: Yes (Other)
  Sender: FDA-CTU
  Company Number: None

PATIENT
  Age: 42 Year
  Sex: Female
  Weight: 94.5 kg

DRUGS (2)
  1. DEOXYCHOLIC ACID [Suspect]
     Active Substance: DEOXYCHOLIC ACID
     Indication: Mesotherapy
  2. VITAMIN D [Concomitant]
     Active Substance: VITAMIN D NOS

REACTIONS (11)
  - Wrong technique in device usage process [None]
  - Muscle twitching [None]
  - Paraesthesia oral [None]
  - Paraesthesia ear [None]
  - Pharyngeal paraesthesia [None]
  - Paraesthesia oral [None]
  - Dry throat [None]
  - Oropharyngeal pain [None]
  - Throat irritation [None]
  - Ear pruritus [None]
  - Pyrexia [None]

NARRATIVE: CASE EVENT DATE: 20250813
